FAERS Safety Report 10239110 (Version 1)
Quarter: 2014Q2

REPORT INFORMATION
  Report Type: Report from Study
  Country: BR (occurrence: BR)
  Receive Date: 20140616
  Receipt Date: 20140616
  Transmission Date: 20141212
  Serious: Yes (Other)
  Sender: FDA-Public Use
  Company Number: BR-ABBVIE-14P-020-1245047-00

PATIENT
  Sex: Female
  Weight: 100 kg

DRUGS (10)
  1. HUMIRA [Suspect]
     Indication: RHEUMATOID ARTHRITIS
     Dates: start: 20140301
  2. METHOTREXATE [Concomitant]
     Indication: RHEUMATOID ARTHRITIS
     Route: 048
     Dates: start: 20130301
  3. PREDNISONE [Concomitant]
     Indication: PAIN
     Route: 048
     Dates: start: 20130301
  4. PREDNISONE [Concomitant]
     Indication: INFLAMMATION
  5. OMEPRAZOLE [Concomitant]
     Indication: GASTRITIS
     Route: 048
     Dates: start: 20110101
  6. REUQUINOL [Concomitant]
     Indication: RHEUMATOID ARTHRITIS
     Route: 048
     Dates: start: 20130301
  7. FOLIC ACID [Concomitant]
     Indication: RHEUMATOID ARTHRITIS
     Route: 048
     Dates: start: 20140301
  8. TRAMAL [Concomitant]
     Indication: PAIN
     Dosage: 1 OR 2 CAPSULES DAILY
     Route: 048
     Dates: start: 20120101
  9. MELOXICAM [Concomitant]
     Indication: PAIN
     Route: 048
     Dates: start: 20130101
  10. NIMESULIDE [Concomitant]
     Indication: PAIN
     Route: 048
     Dates: start: 20130101

REACTIONS (12)
  - Hypoaesthesia [Recovered/Resolved]
  - Inflammation [Recovering/Resolving]
  - Fatigue [Recovering/Resolving]
  - Pain [Recovering/Resolving]
  - Peripheral swelling [Recovering/Resolving]
  - Pain in extremity [Recovering/Resolving]
  - Pain in extremity [Recovering/Resolving]
  - Pain in extremity [Recovering/Resolving]
  - Arthralgia [Recovering/Resolving]
  - Back pain [Recovering/Resolving]
  - Influenza like illness [Recovering/Resolving]
  - Arthritis [Recovering/Resolving]
